FAERS Safety Report 5341569-2 (Version None)
Quarter: 2007Q2

REPORT INFORMATION
  Report Type: 
  Country: None (occurrence: None)
  Receive Date: 20070601
  Receipt Date: 20070521
  Transmission Date: 20071010
  Serious: Yes (Other)
  Sender: FDA-Public Use
  Company Number: TR-JNJFOC-20070505738

PATIENT
  Age: 34 Year
  Sex: Male
  Weight: 80 kg

DRUGS (4)
  1. DURAGESIC-100 [Suspect]
     Indication: BACK PAIN
     Route: 062
  2. DOLANTIN AMPOULE [Suspect]
     Indication: BACK PAIN
     Route: 065
  3. EFFEXOR [Concomitant]
     Indication: PSYCHIATRIC SYMPTOM
     Route: 065
  4. AMITRIPTYLINE HCL [Concomitant]
     Indication: PSYCHIATRIC SYMPTOM
     Route: 065

REACTIONS (2)
  - DRUG INEFFECTIVE [None]
  - SEXUAL DYSFUNCTION [None]
